FAERS Safety Report 8804322 (Version 2)
Quarter: 2012Q4

REPORT INFORMATION
  Report Type: 
  Country: US (occurrence: US)
  Receive Date: 20120924
  Receipt Date: 20121109
  Transmission Date: 20130627
  Serious: No
  Sender: FDA-Public Use
  Company Number: US-ELI_LILLY_AND_COMPANY-US201209003883

PATIENT
  Age: 65 Year
  Sex: Female
  Weight: 76.19 kg

DRUGS (8)
  1. FORTEO [Suspect]
     Indication: OSTEOPOROSIS
     Dosage: UNK
     Dates: start: 20120703, end: 20120716
  2. FORTEO [Suspect]
     Dosage: UNK
     Dates: start: 20120817
  3. LIPITOR [Concomitant]
     Dosage: 20 mg, UNK
  4. FISH OIL [Concomitant]
  5. PREVACID [Concomitant]
     Dosage: 15 mg, UNK
  6. TOPROL [Concomitant]
     Dosage: 100 mg, UNK
  7. BENAZEPRIL [Concomitant]
     Dosage: 40 mg, UNK
  8. NIFEDIPINE [Concomitant]
     Dosage: 60 mg, UNK

REACTIONS (1)
  - No adverse event [Recovering/Resolving]
